APPROVED DRUG PRODUCT: VANCOMYCIN HYDROCHLORIDE
Active Ingredient: VANCOMYCIN HYDROCHLORIDE
Strength: EQ 10GM BASE/VIAL
Dosage Form/Route: INJECTABLE;INJECTION
Application: A215821 | Product #002 | TE Code: AP
Applicant: SLATE RUN PHARMACEUTICALS LLC
Approved: Nov 18, 2021 | RLD: No | RS: No | Type: RX